FAERS Safety Report 4730381-0 (Version None)
Quarter: 2005Q3

REPORT INFORMATION
  Report Type: 
  Country: None (occurrence: None)
  Receive Date: 20050801
  Receipt Date: 20050726
  Transmission Date: 20060218
  Serious: Yes (Death, Life-Threatening)
  Sender: FDA-Public Use
  Company Number: 2005AP04092

PATIENT
  Age: 32 Year
  Sex: Male

DRUGS (2)
  1. SEROQUEL [Suspect]
     Indication: HALLUCINATION
     Route: 048
  2. EFFEXOR [Suspect]
     Dosage: LONG TERM USE
     Route: 048

REACTIONS (7)
  - ALCOHOLISM [None]
  - ASPIRATION [None]
  - DELIRIUM [None]
  - HALLUCINATION, AUDITORY [None]
  - OVERDOSE [None]
  - SUICIDAL IDEATION [None]
  - SUICIDE ATTEMPT [None]
